FAERS Safety Report 6192388-9 (Version None)
Quarter: 2009Q2

REPORT INFORMATION
  Report Type: 
  Country: None (occurrence: None)
  Receive Date: 20090513
  Receipt Date: 20090513
  Transmission Date: 20091009
  Serious: Yes (Other)
  Sender: FDA-Public Use
  Company Number: None

PATIENT
  Age: 78 Year
  Sex: Female
  Weight: 68.0396 kg

DRUGS (1)
  1. BONIVA [Suspect]
     Indication: OSTEOPOROSIS
     Dosage: 150 1 A MONTH
     Dates: start: 20080501, end: 20090401

REACTIONS (5)
  - ANORECTAL DISORDER [None]
  - BLISTER [None]
  - DIARRHOEA [None]
  - PHOTOSENSITIVITY REACTION [None]
  - VAGINAL MUCOSAL BLISTERING [None]
